FAERS Safety Report 14160348 (Version 1)
Quarter: 2017Q4

REPORT INFORMATION
  Report Type: Report from Study
  Country: None (occurrence: GB)
  Receive Date: 20171104
  Receipt Date: 20171104
  Transmission Date: 20180321
  Serious: Yes (Death)
  Sender: FDA-Public Use
  Company Number: GB-ABBVIE-17K-167-2148618-00

PATIENT
  Sex: Male

DRUGS (1)
  1. HUMIRA [Suspect]
     Active Substance: ADALIMUMAB
     Indication: RHEUMATOID ARTHRITIS
     Route: 058
     Dates: start: 201307

REACTIONS (7)
  - Hypertension [Fatal]
  - Rheumatoid arthritis [Fatal]
  - Malignant mesenteric neoplasm [Fatal]
  - Metastases to liver [Fatal]
  - Metastases to stomach [Fatal]
  - Myocardial infarction [Fatal]
  - Type 2 diabetes mellitus [Fatal]
